FAERS Safety Report 7707814-0 (Version None)
Quarter: 2011Q3

REPORT INFORMATION
  Report Type: 
  Country: None (occurrence: None)
  Receive Date: 20110824
  Receipt Date: 20110811
  Transmission Date: 20111222
  Serious: Yes (Other)
  Sender: FDA-Public Use
  Company Number: PHHY2011US39655

PATIENT
  Sex: Female

DRUGS (7)
  1. ASCORBIC ACID [Concomitant]
     Dosage: UNK UKN, UNK
  2. GILENYA [Suspect]
     Indication: MULTIPLE SCLEROSIS
     Dosage: 0.5 MG, QD
     Route: 048
     Dates: start: 20110208, end: 20110630
  3. WARFARIN SODIUM [Concomitant]
     Dosage: UNK UKN, OT
  4. FAMPRIDINE [Concomitant]
     Dosage: UNK UKN, OT
  5. GILENYA [Suspect]
     Dosage: 0.5 MG, QD
     Route: 048
  6. BENADRYL ^ACHE^ [Concomitant]
     Dosage: 25 MG, UNK
  7. DICLOFENAC SODIUM [Concomitant]
     Dosage: UNK UKN, OT

REACTIONS (2)
  - INTERNATIONAL NORMALISED RATIO INCREASED [None]
  - URINARY TRACT INFECTION [None]
